FAERS Safety Report 11610382 (Version 2)
Quarter: 2015Q4

REPORT INFORMATION
  Report Type: Spontaneous
  Country: US (occurrence: US)
  Receive Date: 20151008
  Receipt Date: 20151009
  Transmission Date: 20160304
  Serious: No
  Sender: FDA-Public Use
  Company Number: US-009507513-1509USA004855

PATIENT

DRUGS (1)
  1. KEYTRUDA [Suspect]
     Active Substance: PEMBROLIZUMAB
     Dosage: 200 MG, EVERY THREE WEEKS
     Route: 042

REACTIONS (4)
  - Platelet count decreased [Unknown]
  - Hyperglycaemia [Recovering/Resolving]
  - Amylase increased [Unknown]
  - Pleuritic pain [Unknown]
